FAERS Safety Report 16688869 (Version 2)
Quarter: 2020Q2

REPORT INFORMATION
  Report Type: Spontaneous
  Country: US (occurrence: US)
  Receive Date: 20190809
  Receipt Date: 20200512
  Transmission Date: 20200713
  Serious: No
  Sender: FDA-Public Use
  Company Number: US-TEVA-2019-US-1088190

PATIENT
  Sex: Male

DRUGS (6)
  1. SIMVASTATIN. [Concomitant]
     Active Substance: SIMVASTATIN
  2. METOPROLOL. [Concomitant]
     Active Substance: METOPROLOL
  3. TESTOSTERONE GEL [Suspect]
     Active Substance: TESTOSTERONE
     Indication: BLOOD TESTOSTERONE DECREASED
     Dosage: 6 PUMPS OF GENERIC FORTESTA AND 3 PUMPS OF GENERIC ANDROGEL
     Route: 065
     Dates: start: 2019, end: 20190730
  4. NATURE-THROID [Concomitant]
     Active Substance: THYROID, PORCINE
  5. VALSARTAN. [Concomitant]
     Active Substance: VALSARTAN
  6. TESTOSTERONE GEL [Suspect]
     Active Substance: TESTOSTERONE
     Dosage: 4 PUMP
     Route: 065
     Dates: start: 201907, end: 202004

REACTIONS (3)
  - Fatigue [Unknown]
  - Nervousness [Unknown]
  - Drug ineffective [Unknown]

NARRATIVE: CASE EVENT DATE: 2019
